FAERS Safety Report 16732124 (Version 1)
Quarter: 2019Q3

REPORT INFORMATION
  Report Type: Spontaneous
  Country: US (occurrence: US)
  Receive Date: 20190822
  Receipt Date: 20190822
  Transmission Date: 20191005
  Serious: No
  Sender: FDA-Public Use
  Company Number: US-009507513-1908USA007941

PATIENT
  Sex: Female
  Weight: 82.54 kg

DRUGS (7)
  1. OLMESARTAN MEDOXOMIL (+) HYDROCHLOROTHIAZIDE [Suspect]
     Active Substance: HYDROCHLOROTHIAZIDE\OLMESARTAN MEDOXOMIL
     Indication: HYPERTENSION
     Dosage: (20/12.5 MG TABLET), QD
     Route: 048
     Dates: start: 2013, end: 2018
  2. OLMESARTAN MEDOXOMIL (+) HYDROCHLOROTHIAZIDE [Suspect]
     Active Substance: HYDROCHLOROTHIAZIDE\OLMESARTAN MEDOXOMIL
     Dosage: (20/12.5 MG TABLET), QD
     Route: 048
     Dates: start: 2018, end: 201907
  3. MICARDIS HCT [Suspect]
     Active Substance: HYDROCHLOROTHIAZIDE\TELMISARTAN
     Indication: HYPERTENSION
     Dosage: 20 MG TABLET, QD
     Route: 048
     Dates: start: 201907, end: 201907
  4. PRINIVIL [Suspect]
     Active Substance: LISINOPRIL
     Indication: HYPERTENSION
     Dosage: 1 DOSAGE FORM, QD
     Route: 048
     Dates: start: 201907
  5. OLMESARTAN MEDOXOMIL (+) HYDROCHLOROTHIAZIDE [Suspect]
     Active Substance: HYDROCHLOROTHIAZIDE\OLMESARTAN MEDOXOMIL
     Indication: HYPERTENSION
     Dosage: 20/12.5 MG TABLET, QD
     Route: 048
     Dates: start: 2018, end: 2018
  6. ATENOLOL. [Concomitant]
     Active Substance: ATENOLOL
     Dosage: UNK
  7. ZOLOFT [Concomitant]
     Active Substance: SERTRALINE HYDROCHLORIDE
     Dosage: UNK

REACTIONS (8)
  - Fatigue [Unknown]
  - Nervousness [Unknown]
  - Blood cholesterol increased [Not Recovered/Not Resolved]
  - Swollen tongue [Unknown]
  - Chest discomfort [Unknown]
  - Palpitations [Unknown]
  - Paraesthesia [Unknown]
  - Headache [Unknown]

NARRATIVE: CASE EVENT DATE: 2018
